FAERS Safety Report 10388183 (Version 1)
Quarter: 2014Q3

REPORT INFORMATION
  Report Type: Spontaneous
  Country: US (occurrence: US)
  Receive Date: 20140815
  Receipt Date: 20140815
  Transmission Date: 20150326
  Serious: Yes (Other)
  Sender: FDA-Public Use
  Company Number: US-GLAXOSMITHKLINE-A1084721A

PATIENT
  Age: 63 Year
  Sex: Female

DRUGS (3)
  1. SUMATRIPTAN SUCCINATE. [Suspect]
     Active Substance: SUMATRIPTAN SUCCINATE
     Indication: BONE PAIN
     Dosage: 50MG TWO TIMES PER WEEK
     Route: 048
  2. SYNTHROID [Concomitant]
     Active Substance: LEVOTHYROXINE SODIUM
  3. IMITREX [Suspect]
     Active Substance: SUMATRIPTAN\SUMATRIPTAN SUCCINATE
     Indication: BONE PAIN
     Route: 048
     Dates: start: 2002

REACTIONS (6)
  - Parkinson^s disease [Unknown]
  - Tremor [Not Recovered/Not Resolved]
  - Neck pain [Unknown]
  - Pain in jaw [Unknown]
  - Musculoskeletal stiffness [Unknown]
  - Musculoskeletal pain [Unknown]

NARRATIVE: CASE EVENT DATE: 201211
